FAERS Safety Report 4698971-1 (Version None)
Quarter: 2005Q2

REPORT INFORMATION
  Report Type: 
  Country: None (occurrence: None)
  Receive Date: 20050622
  Receipt Date: 20050622
  Transmission Date: 20051028
  Serious: Yes (Life-Threatening)
  Sender: FDA-Public Use
  Company Number: None

PATIENT
  Age: 72 Year
  Sex: Female
  Weight: 133.1 kg

DRUGS (4)
  1. ENOXAPARIN 100MG [Suspect]
     Indication: ANTICOAGULANT THERAPY
     Dosage: AVENTIS 100MG Q12H SUBCUTANEO
     Route: 058
  2. ENOXAPARIN 100MG [Suspect]
     Indication: ATRIAL FIBRILLATION
     Dosage: AVENTIS 100MG Q12H SUBCUTANEO
     Route: 058
  3. WARFARIN 5MG [Suspect]
     Indication: ANTICOAGULANT THERAPY
     Dosage: 5MG DAILY ORAL
     Route: 048
  4. WARFARIN 5MG [Suspect]
     Indication: ATRIAL FIBRILLATION
     Dosage: 5MG DAILY ORAL
     Route: 048

REACTIONS (5)
  - ABDOMINAL HAEMATOMA [None]
  - CHOLECYSTECTOMY [None]
  - EXPLORATORY OPERATION [None]
  - HAEMOGLOBIN DECREASED [None]
  - RESPIRATORY FAILURE [None]
